FAERS Safety Report 25278867 (Version 3)
Quarter: 2025Q3

REPORT INFORMATION
  Report Type: Spontaneous
  Country: US (occurrence: US)
  Receive Date: 20250507
  Receipt Date: 20250918
  Transmission Date: 20251020
  Serious: Yes (Disabling, Other)
  Sender: PFIZER
  Company Number: US-PFIZER INC-202500094598

PATIENT
  Age: 68 Year
  Sex: Female

DRUGS (3)
  1. XELJANZ XR [Suspect]
     Active Substance: TOFACITINIB CITRATE
     Route: 048
     Dates: start: 20250407
  2. XELJANZ XR [Suspect]
     Active Substance: TOFACITINIB CITRATE
     Route: 048
     Dates: start: 202504
  3. METHOTREXATE [Concomitant]
     Active Substance: METHOTREXATE
     Dosage: 8 DF, WEEKLY (8 PILLS EVERY WEEK)
     Dates: end: 2025

REACTIONS (13)
  - Pain [Not Recovered/Not Resolved]
  - Bedridden [Unknown]
  - Product dose omission in error [Unknown]
  - Pneumonia [Unknown]
  - Abdominal distension [Not Recovered/Not Resolved]
  - Alopecia [Unknown]
  - Joint range of motion decreased [Unknown]
  - Skin laxity [Not Recovered/Not Resolved]
  - Weight decreased [Unknown]
  - Cough [Not Recovered/Not Resolved]
  - Fungal infection [Recovering/Resolving]
  - Fatigue [Not Recovered/Not Resolved]
  - Bone pain [Unknown]

NARRATIVE: CASE EVENT DATE: 20250101
